FAERS Safety Report 13467956 (Version 4)
Quarter: 2017Q3

REPORT INFORMATION
  Report Type: Spontaneous
  Country: KR (occurrence: KR)
  Receive Date: 20170421
  Receipt Date: 20170720
  Transmission Date: 20171127
  Serious: Yes (Hospitalization, Other)
  Sender: FDA-Public Use
  Company Number: KR-009507513-1704KOR008624

PATIENT
  Age: 64 Year
  Sex: Male
  Weight: 64.5 kg

DRUGS (32)
  1. EMEND (FOSAPREPITANT DIMEGLUMINE) [Suspect]
     Active Substance: FOSAPREPITANT DIMEGLUMINE
     Dosage: 150 MG, ONCE
     Route: 042
     Dates: start: 20170224, end: 20170224
  2. EMEND (FOSAPREPITANT DIMEGLUMINE) [Suspect]
     Active Substance: FOSAPREPITANT DIMEGLUMINE
     Dosage: 150 MG, ONCE
     Route: 042
     Dates: start: 20170410, end: 20170410
  3. DEXAMETHASONE. [Concomitant]
     Active Substance: DEXAMETHASONE
     Dosage: 10 MG, ONCE
     Route: 042
     Dates: start: 20170206, end: 20170206
  4. ALOXI [Concomitant]
     Active Substance: PALONOSETRON HYDROCHLORIDE
     Dosage: 0.25 MG, ONCE
     Route: 042
     Dates: start: 20170320, end: 20170320
  5. CISPLATIN. [Concomitant]
     Active Substance: CISPLATIN
     Dosage: 100 MG, ONCE, CYCLE 21
     Route: 041
     Dates: start: 20170224, end: 20170224
  6. EMEND (FOSAPREPITANT DIMEGLUMINE) [Suspect]
     Active Substance: FOSAPREPITANT DIMEGLUMINE
     Dosage: 150 MG, ONCE
     Route: 042
     Dates: start: 20170206, end: 20170206
  7. GEMZAR [Concomitant]
     Active Substance: GEMCITABINE HYDROCHLORIDE
     Indication: LUNG NEOPLASM MALIGNANT
     Dosage: 2140 MG, ONCE, CYCLE 21
     Route: 041
     Dates: start: 20170116, end: 20170116
  8. GEMZAR [Concomitant]
     Active Substance: GEMCITABINE HYDROCHLORIDE
     Dosage: 2000 MG, ONCE, CYCLE 21
     Route: 041
     Dates: start: 20170320, end: 20170320
  9. DEXAMETHASONE. [Concomitant]
     Active Substance: DEXAMETHASONE
     Indication: PROPHYLAXIS
     Dosage: 10 MG, ONCE A DAY
     Route: 042
     Dates: start: 20170116, end: 20170116
  10. DEXAMETHASONE. [Concomitant]
     Active Substance: DEXAMETHASONE
     Dosage: 8 MG, ONCE A DAY
     Route: 042
     Dates: start: 20170117, end: 20170123
  11. DEXAMETHASONE. [Concomitant]
     Active Substance: DEXAMETHASONE
     Dosage: 10 MG, ONCE
     Route: 042
     Dates: start: 20170320, end: 20170320
  12. ALOXI [Concomitant]
     Active Substance: PALONOSETRON HYDROCHLORIDE
     Indication: PROPHYLAXIS
     Dosage: 0.25 MG, ONCE
     Route: 042
     Dates: start: 20170116, end: 20170116
  13. ALOXI [Concomitant]
     Active Substance: PALONOSETRON HYDROCHLORIDE
     Dosage: 0.25 MG, ONCE
     Route: 042
     Dates: start: 20170224, end: 20170224
  14. MANNITOL. [Concomitant]
     Active Substance: MANNITOL
     Dosage: STRENGTH: 15% 100 ML; 90 ML, ONCE
     Route: 041
     Dates: start: 20170320, end: 20170320
  15. EMEND (FOSAPREPITANT DIMEGLUMINE) [Suspect]
     Active Substance: FOSAPREPITANT DIMEGLUMINE
     Indication: PROPHYLAXIS OF NAUSEA AND VOMITING
     Dosage: 150 MG, ONCE
     Route: 042
     Dates: start: 20170116, end: 20170116
  16. GEMZAR [Concomitant]
     Active Substance: GEMCITABINE HYDROCHLORIDE
     Dosage: 2000 MG, ONCE, CYCLE 21
     Route: 041
     Dates: start: 20170410, end: 20170410
  17. MANNITOL. [Concomitant]
     Active Substance: MANNITOL
     Indication: PROPHYLAXIS
     Dosage: STRENGTH: 15% 100 ML; 90 ML, ONCE
     Route: 041
     Dates: start: 20170116, end: 20170116
  18. MANNITOL. [Concomitant]
     Active Substance: MANNITOL
     Dosage: STRENGTH: 15% 100 ML; 90 ML, ONCE
     Route: 041
     Dates: start: 20170206, end: 20170206
  19. MECKOOL [Concomitant]
     Indication: PROPHYLAXIS
     Dosage: STRENGTH: 10MG/2ML,10 MG, QD
     Route: 042
     Dates: start: 20170116, end: 20170118
  20. GEMZAR [Concomitant]
     Active Substance: GEMCITABINE HYDROCHLORIDE
     Dosage: 2000 MG, ONCE, CYCLE 21
     Route: 041
     Dates: start: 20170206, end: 20170206
  21. CISPLATIN. [Concomitant]
     Active Substance: CISPLATIN
     Dosage: 80 MG, ONCE, CYCLE 21
     Route: 041
     Dates: start: 20170320, end: 20170320
  22. DEXAMETHASONE. [Concomitant]
     Active Substance: DEXAMETHASONE
     Dosage: 10 MG, ONCE
     Route: 042
     Dates: start: 20170224, end: 20170224
  23. DEXAMETHASONE. [Concomitant]
     Active Substance: DEXAMETHASONE
     Dosage: 10 MG, ONCE
     Route: 042
     Dates: start: 20170410, end: 20170410
  24. ALOXI [Concomitant]
     Active Substance: PALONOSETRON HYDROCHLORIDE
     Dosage: 0.25 MG, ONCE
     Route: 042
     Dates: start: 20170410, end: 20170410
  25. EMEND (FOSAPREPITANT DIMEGLUMINE) [Suspect]
     Active Substance: FOSAPREPITANT DIMEGLUMINE
     Dosage: 150 MG, ONCE
     Route: 042
     Dates: start: 20170320, end: 20170320
  26. CISPLATIN. [Concomitant]
     Active Substance: CISPLATIN
     Indication: LUNG NEOPLASM MALIGNANT
     Dosage: 100 MG, ONCE, CYCLE 21
     Route: 041
     Dates: start: 20170116, end: 20170116
  27. CISPLATIN. [Concomitant]
     Active Substance: CISPLATIN
     Dosage: 100 MG, ONCE, CYCLE 21
     Route: 041
     Dates: start: 20170206, end: 20170206
  28. MANNITOL. [Concomitant]
     Active Substance: MANNITOL
     Dosage: STRENGTH: 15% 100 ML; 90 ML, ONCE
     Route: 041
     Dates: start: 20170224, end: 20170224
  29. GEMZAR [Concomitant]
     Active Substance: GEMCITABINE HYDROCHLORIDE
     Dosage: 2000 MG, ONCE, CYCLE 21
     Route: 041
     Dates: start: 20170224, end: 20170224
  30. CISPLATIN. [Concomitant]
     Active Substance: CISPLATIN
     Dosage: 80 MG, ONCE, CYCLE 21
     Route: 041
     Dates: start: 20170410, end: 20170410
  31. ALOXI [Concomitant]
     Active Substance: PALONOSETRON HYDROCHLORIDE
     Dosage: 0.25 MG, ONCE
     Route: 042
     Dates: start: 20170206, end: 20170206
  32. MANNITOL. [Concomitant]
     Active Substance: MANNITOL
     Dosage: STRENGTH: 15% 100 ML; 90 ML, ONCE
     Route: 041
     Dates: start: 20170410, end: 20170410

REACTIONS (2)
  - Haemoptysis [Recovered/Resolved]
  - Decreased appetite [Recovered/Resolved]

NARRATIVE: CASE EVENT DATE: 20170117
